FAERS Safety Report 6855059-9 (Version None)
Quarter: 2010Q3

REPORT INFORMATION
  Report Type: 
  Country: None (occurrence: None)
  Receive Date: 20100717
  Receipt Date: 20081125
  Transmission Date: 20110219
  Serious: Yes (Hospitalization)
  Sender: FDA-Public Use
  Company Number: US-PFIZER INC-2007108658

PATIENT
  Age: 47 Year
  Sex: Male
  Weight: 72.109 kg

DRUGS (2)
  1. CHANTIX [Suspect]
     Dosage: 1 MG, 2X/DAY
     Route: 048
     Dates: start: 20070604, end: 20070804
  2. KEPPRA [Concomitant]
     Indication: CONVULSION

REACTIONS (1)
  - CONVULSION [None]
